FAERS Safety Report 21063338 (Version 1)
Quarter: 2022Q3

REPORT INFORMATION
  Report Type: Spontaneous
  Country: JP (occurrence: JP)
  Receive Date: 20220711
  Receipt Date: 20220711
  Transmission Date: 20221026
  Serious: Yes (Other)
  Sender: FDA-Public Use
  Company Number: JP-SUN PHARMACEUTICAL INDUSTRIES LTD-2022RR-343913

PATIENT
  Age: 82 Year
  Sex: Male

DRUGS (1)
  1. SUNITINIB [Suspect]
     Active Substance: SUNITINIB
     Indication: Metastatic renal cell carcinoma
     Dosage: 25 MILLIGRAM, DAILY, 2 WEEKS ON AND 1 WEEK OFF
     Route: 048

REACTIONS (2)
  - Disease progression [Unknown]
  - Adverse drug reaction [Unknown]
